FAERS Safety Report 25275741 (Version 1)
Quarter: 2025Q2

REPORT INFORMATION
  Report Type: Spontaneous
  Country: US (occurrence: US)
  Receive Date: 20250507
  Receipt Date: 20250507
  Transmission Date: 20250717
  Serious: Yes (Disabling)
  Sender: ALEXION PHARMACEUTICALS
  Company Number: US-AstraZeneca-CH-00862111A

PATIENT
  Age: 74 Year
  Weight: 58.513 kg

DRUGS (1)
  1. FARXIGA [Suspect]
     Active Substance: DAPAGLIFLOZIN PROPANEDIOL
     Indication: Chronic kidney disease
     Dosage: 10 MILLIGRAM/SQ. METER

REACTIONS (4)
  - Disorientation [Recovered/Resolved]
  - Balance disorder [Recovered/Resolved]
  - Bradyphrenia [Recovered/Resolved]
  - Daydreaming [Recovered/Resolved]
